FAERS Safety Report 4622831-5 (Version None)
Quarter: 2005Q1

REPORT INFORMATION
  Report Type: 
  Country: None (occurrence: None)
  Receive Date: 20050330
  Receipt Date: 20010824
  Transmission Date: 20050727
  Serious: Yes (Other)
  Sender: FDA-Public Use
  Company Number: US-GLAXOSMITHKLINE-A0352279A

PATIENT
  Age: 35 Year
  Sex: Female

DRUGS (9)
  1. PAXIL [Suspect]
     Indication: ANXIETY
     Dates: start: 19970101, end: 20010101
  2. INDERAL [Concomitant]
  3. PROZAC [Concomitant]
  4. SERZONE [Concomitant]
     Indication: HEADACHE
     Dates: start: 20010201
  5. IMITREX [Concomitant]
     Dosage: 50MG AS REQUIRED
  6. WELLBUTRIN [Concomitant]
     Indication: SMOKING CESSATION THERAPY
  7. WELLBUTRIN SR [Concomitant]
     Indication: SMOKING CESSATION THERAPY
     Dosage: 100MG TWICE PER DAY
  8. CALCIUM + MAGNESIUM [Concomitant]
  9. IMODIUM [Concomitant]

REACTIONS (20)
  - ABASIA [None]
  - ABDOMINAL PAIN [None]
  - ADVERSE EVENT [None]
  - ANXIETY [None]
  - DEPRESSION [None]
  - DIARRHOEA [None]
  - DRUG DEPENDENCE [None]
  - DRUG WITHDRAWAL SYNDROME [None]
  - EAR INFECTION [None]
  - HEADACHE [None]
  - INSOMNIA [None]
  - NAUSEA [None]
  - PARANOIA [None]
  - PYREXIA [None]
  - SEXUAL DYSFUNCTION [None]
  - SPEECH DISORDER [None]
  - TREMOR [None]
  - URINARY INCONTINENCE [None]
  - VERTIGO [None]
  - VOMITING [None]
